FAERS Safety Report 5648903-4 (Version None)
Quarter: 2008Q1

REPORT INFORMATION
  Report Type: 
  Country: None (occurrence: None)
  Receive Date: 20080304
  Receipt Date: 20080122
  Transmission Date: 20080703
  Serious: No
  Sender: FDA-Public Use
  Company Number: US-BAYER-200812158NA

PATIENT
  Age: 75 Year
  Sex: Male

DRUGS (1)
  1. ULTRAVIST PHARMACY BULK PACKAGE 300 [Suspect]
     Indication: COMPUTERISED TOMOGRAM
     Dosage: TOTAL DAILY DOSE: 95 ML  UNIT DOSE: 95 ML
     Route: 042
     Dates: start: 20080117, end: 20080117

REACTIONS (2)
  - ERYTHEMA [None]
  - SWELLING FACE [None]
